FAERS Safety Report 8431805-8 (Version None)
Quarter: 2012Q2

REPORT INFORMATION
  Report Type: 
  Country: None (occurrence: None)
  Receive Date: 20120607
  Receipt Date: 20120607
  Transmission Date: 20120825
  Serious: Yes (Hospitalization)
  Sender: FDA-Public Use
  Company Number: None

PATIENT
  Sex: Female
  Weight: 110 kg

DRUGS (2)
  1. TAXOL [Suspect]
     Dosage: 350 MG
     Dates: end: 20120515
  2. CISPLATIN [Suspect]
     Dosage: 100 MG
     Dates: end: 20120516

REACTIONS (4)
  - HAEMATURIA [None]
  - ANAEMIA [None]
  - PULMONARY EMBOLISM [None]
  - DEEP VEIN THROMBOSIS [None]
